FAERS Safety Report 6130469-6 (Version None)
Quarter: 2009Q1

REPORT INFORMATION
  Report Type: 
  Country: None (occurrence: None)
  Receive Date: 20090323
  Receipt Date: 20090308
  Transmission Date: 20090719
  Serious: Yes (Hospitalization)
  Sender: FDA-Public Use
  Company Number: 2004S1000361

PATIENT
  Age: 60 Year
  Sex: Female
  Weight: 53.978 kg

DRUGS (9)
  1. PHOSPHOSODA UNFLAVORED [Suspect]
     Indication: COLONOSCOPY
     Dosage: 90 ML; TOTAL; PO
     Route: 048
     Dates: start: 20040615, end: 20040616
  2. AVALIDE [Concomitant]
  3. ACTONEL [Concomitant]
  4. ASPIRIN [Concomitant]
  5. VITAMIN E /00110501/ [Concomitant]
  6. DEMEROL [Concomitant]
  7. VERSED [Concomitant]
  8. NARCAN [Concomitant]
  9. NEXIUM [Concomitant]

REACTIONS (16)
  - ABDOMINAL DISCOMFORT [None]
  - ABDOMINAL PAIN [None]
  - ANOREXIA [None]
  - DEHYDRATION [None]
  - DIZZINESS [None]
  - DRUG TOXICITY [None]
  - DYSGEUSIA [None]
  - FATIGUE [None]
  - FEELING ABNORMAL [None]
  - GASTROOESOPHAGEAL REFLUX DISEASE [None]
  - IRRITABLE BOWEL SYNDROME [None]
  - NAUSEA [None]
  - PANCREATIC CYST [None]
  - POST PROCEDURAL COMPLICATION [None]
  - RENAL FAILURE CHRONIC [None]
  - WEIGHT DECREASED [None]
